FAERS Safety Report 9672192 (Version 1)
Quarter: 2013Q4

REPORT INFORMATION
  Report Type: Other
  Country: US (occurrence: US)
  Receive Date: 20131106
  Receipt Date: 20131106
  Transmission Date: 20140711
  Serious: Yes (Life-Threatening, Hospitalization)
  Sender: FDA-Public Use
  Company Number: US-BRISTOL-MYERS SQUIBB COMPANY-19707413

PATIENT
  Age: 31 Year
  Sex: Male

DRUGS (2)
  1. METFORMIN HCL [Suspect]
  2. ATRIPLA [Concomitant]
     Indication: HIV INFECTION

REACTIONS (7)
  - Suicide attempt [Unknown]
  - Hypoglycaemia [Recovering/Resolving]
  - Somnolence [Unknown]
  - Tachypnoea [Unknown]
  - Renal impairment [Unknown]
  - Lactic acidosis [Unknown]
  - Intentional overdose [Unknown]
